FAERS Safety Report 5482361-8 (Version None)
Quarter: 2007Q4

REPORT INFORMATION
  Report Type: 
  Country: None (occurrence: None)
  Receive Date: 20071011
  Receipt Date: 20071009
  Transmission Date: 20080405
  Serious: Yes (Hospitalization, Disabling)
  Sender: FDA-Public Use
  Company Number: A0686671A

PATIENT
  Age: 61 Year
  Sex: Male

DRUGS (8)
  1. REQUIP [Suspect]
     Indication: RESTLESS LEGS SYNDROME
     Dosage: .25MG PER DAY
     Route: 048
     Dates: start: 20071001, end: 20071001
  2. METOPROLOL TARTRATE [Concomitant]
  3. HYDRALAZINE HCL [Concomitant]
  4. CRESTOR [Concomitant]
  5. COZAAR [Concomitant]
  6. PHOSLO [Concomitant]
  7. PROMETHAZINE [Concomitant]
  8. ZOLPIDEM TARTRATE [Concomitant]

REACTIONS (1)
  - DIPLOPIA [None]
